FAERS Safety Report 8632929 (Version 4)
Quarter: 2013Q1

REPORT INFORMATION
  Report Type: Spontaneous
  Country: US (occurrence: US)
  Receive Date: 20120625
  Receipt Date: 20130114
  Transmission Date: 20140127
  Serious: Yes (Hospitalization, Other)
  Sender: FDA-Public Use
  Company Number: US-ASTRAZENECA-2012SE40100

PATIENT
  Age: 81 Year
  Sex: Female

DRUGS (6)
  1. LISINOPRIL [Suspect]
     Route: 048
  2. TOPROL XL [Suspect]
     Route: 048
  3. CRESTOR [Suspect]
     Route: 048
  4. CRESTOR [Suspect]
     Dosage: EVERY OTHER DAY
     Route: 048
  5. TRIMTERENE HCTZ [Concomitant]
  6. LYRICA [Concomitant]

REACTIONS (9)
  - Fall [Unknown]
  - Head injury [Unknown]
  - Ligament sprain [Unknown]
  - Nerve injury [Unknown]
  - Hypertension [Unknown]
  - Heart rate increased [Unknown]
  - Intentional drug misuse [Unknown]
  - Drug dose omission [Unknown]
  - Drug ineffective [Unknown]
